FAERS Safety Report 7394901-2 (Version None)
Quarter: 2011Q2

REPORT INFORMATION
  Report Type: 
  Country: None (occurrence: None)
  Receive Date: 20110405
  Receipt Date: 20110325
  Transmission Date: 20111010
  Serious: Yes (Hospitalization, Disabling)
  Sender: FDA-Public Use
  Company Number: B0708365A

PATIENT
  Sex: Male

DRUGS (2)
  1. AVANDAMET [Suspect]
     Indication: DIABETES MELLITUS
     Dates: start: 20060101
  2. MEDIATOR [Suspect]
     Indication: DIABETES MELLITUS
     Dosage: 3TAB PER DAY
     Route: 048
     Dates: start: 20060901, end: 20080201

REACTIONS (9)
  - MITRAL VALVE DISEASE [None]
  - ARTERIAL DISORDER [None]
  - DIARRHOEA [None]
  - INSOMNIA [None]
  - CARDIAC DISORDER [None]
  - MITRAL VALVE REPLACEMENT [None]
  - AORTIC VALVE REPLACEMENT [None]
  - DYSPNOEA [None]
  - TRICUSPID VALVE INCOMPETENCE [None]
